FAERS Safety Report 17999909 (Version 7)
Quarter: 2021Q2

REPORT INFORMATION
  Report Type: Spontaneous
  Country: US (occurrence: US)
  Receive Date: 20200709
  Receipt Date: 20210517
  Transmission Date: 20210717
  Serious: No
  Sender: FDA-Public Use
  Company Number: US-PFIZER INC-2020263535

PATIENT
  Age: 58 Year
  Sex: Female

DRUGS (2)
  1. IBRANCE [Suspect]
     Active Substance: PALBOCICLIB
     Dosage: 75 MG
     Dates: start: 20200622, end: 20200628
  2. IBRANCE [Suspect]
     Active Substance: PALBOCICLIB
     Dosage: 75 MG
     Dates: start: 20200722

REACTIONS (6)
  - Blood calcium decreased [Unknown]
  - White blood cell count decreased [Unknown]
  - Abdominal distension [Unknown]
  - Hair colour changes [Unknown]
  - Fatigue [Recovering/Resolving]
  - Oral pain [Unknown]

NARRATIVE: CASE EVENT DATE: 2020
